FAERS Safety Report 11977865 (Version 2)
Quarter: 2016Q1

REPORT INFORMATION
  Report Type: Spontaneous
  Country: US (occurrence: US)
  Receive Date: 20160129
  Receipt Date: 20160208
  Transmission Date: 20160526
  Serious: No
  Sender: FDA-Public Use
  Company Number: US-JNJFOC-20160112010

PATIENT
  Age: 36 Year
  Sex: Male
  Weight: 99.79 kg

DRUGS (1)
  1. BENADRYL ALLERGY LIQUI-GELS [Suspect]
     Active Substance: DIPHENHYDRAMINE HYDROCHLORIDE
     Indication: SLEEP DISORDER THERAPY
     Dosage: DOSE: 4 SOFTGELS, ONCE (CUT OPENED 4 SOFTGELS AND ADDED IN DRINK).
     Route: 048
     Dates: start: 20160113, end: 20160113

REACTIONS (3)
  - Fatigue [Recovering/Resolving]
  - Intentional product misuse [Recovering/Resolving]
  - Somnolence [Recovered/Resolved]

NARRATIVE: CASE EVENT DATE: 20160113
